FAERS Safety Report 7713660-4 (Version None)
Quarter: 2011Q3

REPORT INFORMATION
  Report Type: 
  Country: None (occurrence: None)
  Receive Date: 20110826
  Receipt Date: 20110823
  Transmission Date: 20111222
  Serious: Yes (Other)
  Sender: FDA-Public Use
  Company Number: AU-PFIZER INC-2011123863

PATIENT
  Age: 50 Year
  Sex: Female

DRUGS (2)
  1. ZOLOFT [Suspect]
     Dosage: UNK
  2. ALCOHOL [Interacting]
     Dosage: UNK

REACTIONS (3)
  - ALCOHOL INTERACTION [None]
  - ALCOHOL POISONING [None]
  - VICTIM OF SEXUAL ABUSE [None]
